FAERS Safety Report 21342183 (Version 1)
Quarter: 2022Q3

REPORT INFORMATION
  Report Type: Spontaneous
  Country: US (occurrence: None)
  Receive Date: 20220916
  Receipt Date: 20220916
  Transmission Date: 20221027
  Serious: Yes (Hospitalization)
  Sender: FDA-Public Use
  Company Number: None

PATIENT
  Age: 0 Year
  Sex: Male
  Weight: 7.4 kg

DRUGS (1)
  1. MYLOTARG [Suspect]
     Active Substance: GEMTUZUMAB OZOGAMICIN
     Dates: end: 20220511

REACTIONS (5)
  - Grunting [None]
  - Abdominal pain [None]
  - Hepatomegaly [None]
  - Drug ineffective [None]
  - Venoocclusive liver disease [None]

NARRATIVE: CASE EVENT DATE: 20220914
